FAERS Safety Report 9758806 (Version 1)
Quarter: 2013Q4

REPORT INFORMATION
  Report Type: Spontaneous
  Country: US (occurrence: None)
  Receive Date: 20131216
  Receipt Date: 20131216
  Transmission Date: 20140711
  Serious: Yes (Hospitalization, Other)
  Sender: FDA-Public Use
  Company Number: 084293

PATIENT
  Age: 54 Year
  Sex: Male

DRUGS (2)
  1. CIMZIA [Suspect]
     Indication: RHEUMATOID ARTHRITIS
     Dosage: (400 MG)
  2. CIMZIA [Suspect]
     Indication: CROHN^S DISEASE
     Dosage: (400 MG)

REACTIONS (7)
  - Loss of consciousness [None]
  - Noninfective bronchitis [None]
  - Pneumonia [None]
  - Dyspnoea [None]
  - Rib fracture [None]
  - Feeling abnormal [None]
  - Fall [None]
